FAERS Safety Report 7137714-9 (Version None)
Quarter: 2010Q4

REPORT INFORMATION
  Report Type: 
  Country: None (occurrence: None)
  Receive Date: 20101119
  Receipt Date: 20101104
  Transmission Date: 20110411
  Serious: Yes (Other)
  Sender: FDA-Public Use
  Company Number: 019781

PATIENT
  Sex: Male
  Weight: 3.7 kg

DRUGS (5)
  1. KEPPRA [Suspect]
     Indication: EPILEPSY
     Dosage: (200 MG TRANSPLACENTAL) (2500 MG TRANSPLACENTAL)
     Route: 064
     Dates: start: 20100101
  2. KEPPRA [Suspect]
     Indication: EPILEPSY
     Dosage: (200 MG TRANSPLACENTAL) (2500 MG TRANSPLACENTAL)
     Route: 064
     Dates: start: 20100101
  3. FOLIC ACID [Concomitant]
  4. FROVA [Concomitant]
  5. PRENATAL VITAMINS /01549301/ [Concomitant]

REACTIONS (7)
  - AMNIOTIC FLUID VOLUME DECREASED [None]
  - CAESAREAN SECTION [None]
  - FOETAL HEART RATE ABNORMAL [None]
  - MATERNAL DRUGS AFFECTING FOETUS [None]
  - NEONATAL ASPIRATION [None]
  - PLACENTAL INFARCTION [None]
  - POSTMATURE BABY [None]
